FAERS Safety Report 12899081 (Version 1)
Quarter: 2016Q4

REPORT INFORMATION
  Report Type: Spontaneous
  Country: US (occurrence: US)
  Receive Date: 20161101
  Receipt Date: 20161101
  Transmission Date: 20170207
  Serious: Yes (Other)
  Sender: FDA-Public Use
  Company Number: US-STRIDES ARCOLAB LIMITED-2016SP016676

PATIENT

DRUGS (1)
  1. IBUPROFEN. [Suspect]
     Active Substance: IBUPROFEN
     Indication: PRODUCT USED FOR UNKNOWN INDICATION
     Dosage: 800 MG, UNK
     Route: 048

REACTIONS (5)
  - Dysphagia [Recovered/Resolved]
  - Oesophageal obstruction [Recovered/Resolved]
  - Oesophageal stenosis [Recovered/Resolved]
  - Eosinophilic oesophagitis [Unknown]
  - Neck pain [Recovered/Resolved]
